APPROVED DRUG PRODUCT: PERMETHRIN
Active Ingredient: PERMETHRIN
Strength: 1%
Dosage Form/Route: LOTION;TOPICAL
Application: A075014 | Product #001
Applicant: ACTAVIS MID ATLANTIC LLC AN INDIRECT WHOLLY OWNED SUB OF TEVA PHARMACEUTICALS USA INC
Approved: Mar 28, 2000 | RLD: No | RS: No | Type: OTC